FAERS Safety Report 5937535-6 (Version None)
Quarter: 2008Q4

REPORT INFORMATION
  Report Type: 
  Country: None (occurrence: None)
  Receive Date: 20081029
  Receipt Date: 20081015
  Transmission Date: 20090506
  Serious: Yes (Hospitalization)
  Sender: FDA-Public Use
  Company Number: 2008BI023702

PATIENT
  Age: 47 Year
  Sex: Female

DRUGS (3)
  1. TYSABRI [Suspect]
     Indication: CROHN'S DISEASE
     Dosage: 300 MG; QM; IV
     Route: 042
     Dates: start: 20080602, end: 20080602
  2. CON MEDS [Concomitant]
  3. PREV MEDS [Concomitant]

REACTIONS (4)
  - CROHN'S DISEASE [None]
  - GASTROINTESTINAL STOMA COMPLICATION [None]
  - HAEMATOCHEZIA [None]
  - ILEORECTAL FISTULA [None]
